FAERS Safety Report 15022536 (Version 1)
Quarter: 2018Q3

REPORT INFORMATION
  Report Type: Spontaneous
  Country: US (occurrence: US)
  Receive Date: 20180618
  Receipt Date: 20180618
  Transmission Date: 20181010
  Serious: No
  Sender: FDA-Public Use
  Company Number: US-MYLANLABS-2018M1034727

PATIENT
  Sex: Female
  Weight: 48 kg

DRUGS (1)
  1. HYDROCHLOROTHIAZIDE/SPIRONOLACTONE [Suspect]
     Active Substance: HYDROCHLOROTHIAZIDE\SPIRONOLACTONE
     Indication: HYPERTENSION
     Dosage: UNK
     Route: 048

REACTIONS (4)
  - Product physical issue [None]
  - Underdose [Not Recovered/Not Resolved]
  - Product friable [None]
  - Product availability issue [Unknown]
